FAERS Safety Report 6712704-6 (Version None)
Quarter: 2010Q2

REPORT INFORMATION
  Report Type: 
  Country: None (occurrence: None)
  Receive Date: 20100505
  Receipt Date: 20100505
  Transmission Date: 20101027
  Serious: Yes (Other)
  Sender: FDA-Public Use
  Company Number: None

PATIENT
  Age: 27 Year
  Sex: Female
  Weight: 54.4316 kg

DRUGS (1)
  1. MICROGESTIN FE 1/20 [Suspect]
     Indication: CONTRACEPTION
     Dosage: 1 MG NORETHINDRONE ACETATE/20M DAILY PO
     Route: 048
     Dates: start: 20100312, end: 20100504

REACTIONS (3)
  - CYSTITIS [None]
  - DISEASE RECURRENCE [None]
  - FUNGAL INFECTION [None]
